FAERS Safety Report 6572895-7 (Version None)
Quarter: 2010Q1

REPORT INFORMATION
  Report Type: 
  Country: None (occurrence: None)
  Receive Date: 20100207
  Receipt Date: 20100203
  Transmission Date: 20100710
  Serious: Yes (Hospitalization, Disabling, Other)
  Sender: FDA-Public Use
  Company Number: GB-MERCK-1001GBR00112

PATIENT
  Age: 47 Year
  Sex: Male

DRUGS (1)
  1. ZOCOR [Suspect]
     Indication: HYPERLIPIDAEMIA
     Route: 048
     Dates: start: 20080222

REACTIONS (5)
  - CONTUSION [None]
  - PAIN IN EXTREMITY [None]
  - SWELLING [None]
  - TENDON OPERATION [None]
  - TENDON RUPTURE [None]
